FAERS Safety Report 9962374 (Version 1)
Quarter: 2014Q1

REPORT INFORMATION
  Report Type: Spontaneous
  Country: US (occurrence: US)
  Receive Date: 20140305
  Receipt Date: 20140305
  Transmission Date: 20141002
  Serious: No
  Sender: FDA-Public Use
  Company Number: US-ABBVIE-13P-163-1116478-00

PATIENT
  Age: 58 Year
  Sex: Male
  Weight: 95.34 kg

DRUGS (7)
  1. HUMIRA [Suspect]
     Indication: CROHN^S DISEASE
     Route: 058
     Dates: start: 201212
  2. LYRICA [Concomitant]
     Indication: NEURALGIA
  3. SIMVASTATIN [Concomitant]
     Indication: BLOOD CHOLESTEROL INCREASED
  4. COZAAR [Concomitant]
     Indication: HYPERTENSION
  5. ATENOLOL [Concomitant]
     Indication: HYPERTENSION
  6. HYDROCODONE [Concomitant]
     Indication: NEURALGIA
  7. FENTANYL - B.BRAUN [Concomitant]
     Indication: NEURALGIA

REACTIONS (1)
  - Fatigue [Not Recovered/Not Resolved]
